FAERS Safety Report 5752171-2 (Version None)
Quarter: 2008Q2

REPORT INFORMATION
  Report Type: 
  Country: None (occurrence: None)
  Receive Date: 20080529
  Receipt Date: 20080521
  Transmission Date: 20081010
  Serious: Yes (Death, Hospitalization)
  Sender: FDA-Public Use
  Company Number: DE-JNJFOC-20080400058

PATIENT
  Sex: Female

DRUGS (4)
  1. DOXORUBICIN HCL [Suspect]
     Dosage: CYCLE 3    THERAPY DURATION  4,3000 MONTHS
     Route: 042
  2. DOXORUBICIN HCL [Suspect]
     Indication: OVARIAN EPITHELIAL CANCER
     Route: 042
  3. CARBOPLATIN [Suspect]
     Dosage: CYCLE 3      THERAPY DURATION  4,3000 MONTHS
     Route: 042
  4. CARBOPLATIN [Suspect]
     Indication: OVARIAN EPITHELIAL CANCER
     Route: 042

REACTIONS (15)
  - BLOOD PRESSURE DECREASED [None]
  - CATHETER RELATED INFECTION [None]
  - GENERAL PHYSICAL HEALTH DETERIORATION [None]
  - HEART RATE INCREASED [None]
  - HEPATIC FAILURE [None]
  - HERPES SIMPLEX [None]
  - HYPERAESTHESIA [None]
  - MICTURITION URGENCY [None]
  - MUSCULAR WEAKNESS [None]
  - PLEURAL EFFUSION [None]
  - RENAL FAILURE [None]
  - SENSORY LOSS [None]
  - SEPSIS [None]
  - STAPHYLOCOCCAL INFECTION [None]
  - URGE INCONTINENCE [None]
